FAERS Safety Report 11967136 (Version 1)
Quarter: 2016Q1

REPORT INFORMATION
  Report Type: Spontaneous
  Country: US (occurrence: US)
  Receive Date: 20160127
  Receipt Date: 20160127
  Transmission Date: 20160526
  Serious: No
  Sender: FDA-Public Use
  Company Number: US-PFIZER INC-2015476545

PATIENT
  Sex: Female

DRUGS (3)
  1. ADVIL [Suspect]
     Active Substance: IBUPROFEN
     Dosage: 3 DF, UNK
  2. ADVIL [Suspect]
     Active Substance: IBUPROFEN
     Indication: NEURALGIA
     Dosage: 1 DF, UNK
  3. ADVIL [Suspect]
     Active Substance: IBUPROFEN
     Dosage: 2 DF, UNK

REACTIONS (1)
  - Drug ineffective for unapproved indication [Unknown]
